FAERS Safety Report 8383197-0 (Version None)
Quarter: 2012Q2

REPORT INFORMATION
  Report Type: 
  Country: None (occurrence: None)
  Receive Date: 20120524
  Receipt Date: 20120515
  Transmission Date: 20120825
  Serious: Yes (Other)
  Sender: FDA-Public Use
  Company Number: GB-EISAI INC-E7389-02455-SPO-GB

PATIENT
  Sex: Female

DRUGS (1)
  1. HALAVEN [Suspect]
     Dosage: UNKNOWN
     Route: 041
     Dates: end: 20120301

REACTIONS (2)
  - HEADACHE [None]
  - DEAFNESS BILATERAL [None]
